FAERS Safety Report 25677810 (Version 1)
Quarter: 2025Q3

REPORT INFORMATION
  Report Type: Spontaneous
  Country: US (occurrence: US)
  Receive Date: 20250813
  Receipt Date: 20250813
  Transmission Date: 20251021
  Serious: Yes (Other)
  Sender: ABBVIE
  Company Number: US-ABBVIE-6401395

PATIENT
  Sex: Female

DRUGS (1)
  1. REFRESH OPTIVE [Suspect]
     Active Substance: CARBOXYMETHYLCELLULOSE SODIUM\GLYCERIN
     Indication: Dry eye
     Route: 047
     Dates: start: 2015

REACTIONS (4)
  - Hordeolum [Unknown]
  - Meibomian gland dysfunction [Unknown]
  - Product residue present [Unknown]
  - Visual impairment [Unknown]

NARRATIVE: CASE EVENT DATE: 20250101
